FAERS Safety Report 16970956 (Version 1)
Quarter: 2019Q4

REPORT INFORMATION
  Report Type: Spontaneous
  Country: JP (occurrence: JP)
  Receive Date: 20191029
  Receipt Date: 20191029
  Transmission Date: 20200122
  Serious: Yes (Death, Hospitalization, Other)
  Sender: FDA-Public Use
  Company Number: JP-SAKK-2019SA286595AA

PATIENT
  Age: 76 Year
  Sex: Male

DRUGS (2)
  1. INSULIN [Concomitant]
     Active Substance: INSULIN NOS
     Indication: TYPE 2 DIABETES MELLITUS
     Dosage: QD (MORNING)
     Route: 065
  2. LANTUS SOLOSTAR [Suspect]
     Active Substance: INSULIN GLARGINE
     Indication: TYPE 2 DIABETES MELLITUS
     Dosage: QD (MORNING)
     Route: 058

REACTIONS (10)
  - General physical health deterioration [Fatal]
  - Cerebral infarction [Fatal]
  - Blood glucose decreased [Recovered/Resolved]
  - Cerebral haemorrhage [Fatal]
  - Depressed level of consciousness [Fatal]
  - Facial spasm [Fatal]
  - Subarachnoid haemorrhage [Fatal]
  - Depressed level of consciousness [Recovered/Resolved]
  - Dyskinesia [Fatal]
  - Fall [Recovered/Resolved]
